FAERS Safety Report 25989725 (Version 1)
Quarter: 2025Q4

REPORT INFORMATION
  Report Type: Spontaneous
  Country: EU (occurrence: EU)
  Receive Date: 20251103
  Receipt Date: 20251103
  Transmission Date: 20260118
  Serious: Yes (Hospitalization)
  Sender: Haleon PLC
  Company Number: None

PATIENT
  Age: 17 Year
  Sex: Male
  Weight: 86.5 kg

DRUGS (1)
  1. IBUPROFEN [Suspect]
     Active Substance: IBUPROFEN
     Indication: Influenza like illness
     Dates: start: 20250816, end: 20250817

REACTIONS (1)
  - Henoch-Schonlein purpura [Recovering/Resolving]

NARRATIVE: CASE EVENT DATE: 20250819
